FAERS Safety Report 5637814-6 (Version None)
Quarter: 2008Q1

REPORT INFORMATION
  Report Type: 
  Country: None (occurrence: None)
  Receive Date: 20080220
  Receipt Date: 20080211
  Transmission Date: 20080703
  Serious: Yes (Death, Hospitalization, Other)
  Sender: FDA-Public Use
  Company Number: 163-21880-06020665

PATIENT
  Age: 76 Year
  Sex: Male

DRUGS (5)
  1. REVLIMID [Suspect]
     Indication: MYELODYSPLASTIC SYNDROME
     Dosage: 10 MG, 1 IN 1 D, ORAL; 5 MG, 1 IN 1 D, ORAL
     Route: 048
     Dates: start: 20060201, end: 20060101
  2. REVLIMID [Suspect]
     Indication: MYELODYSPLASTIC SYNDROME
     Dosage: 10 MG, 1 IN 1 D, ORAL; 5 MG, 1 IN 1 D, ORAL
     Route: 048
     Dates: start: 20060701, end: 20060101
  3. PROCRIT [Concomitant]
  4. NEUPOGEN [Concomitant]
  5. EPOGEN [Concomitant]

REACTIONS (9)
  - BLOOD COUNT ABNORMAL [None]
  - CEREBROVASCULAR ACCIDENT [None]
  - FALL [None]
  - HYPOAESTHESIA [None]
  - ILL-DEFINED DISORDER [None]
  - LOSS OF CONTROL OF LEGS [None]
  - MOVEMENT DISORDER [None]
  - SENSATION OF HEAVINESS [None]
  - TRANSIENT ISCHAEMIC ATTACK [None]
